FAERS Safety Report 19966049 (Version 1)
Quarter: 2021Q4

REPORT INFORMATION
  Report Type: Spontaneous
  Country: JP (occurrence: JP)
  Receive Date: 20211018
  Receipt Date: 20211018
  Transmission Date: 20220303
  Serious: Yes (Other)
  Sender: FDA-Public Use
  Company Number: JP-PFIZER INC-202101314893

PATIENT
  Sex: Male

DRUGS (1)
  1. VYNDAQEL [Suspect]
     Active Substance: TAFAMIDIS MEGLUMINE
     Indication: Cardiac amyloidosis
     Dosage: 4 CAPSULES, 1X/DAY, AFTER BREAKFAST
     Route: 048
     Dates: start: 201911

REACTIONS (4)
  - Foreign body in throat [Unknown]
  - Tension [Unknown]
  - Musculoskeletal stiffness [Unknown]
  - Product use complaint [Unknown]
